FAERS Safety Report 7662166-X (Version None)
Quarter: 2011Q3

REPORT INFORMATION
  Report Type: 
  Country: None (occurrence: None)
  Receive Date: 20110805
  Receipt Date: 20101201
  Transmission Date: 20111222
  Serious: No
  Sender: FDA-Public Use
  Company Number: US-ABBOTT-10P-163-0689565-00

PATIENT
  Age: 54 Year
  Sex: Male
  Weight: 83.99 kg

DRUGS (5)
  1. RED YEAST RICE [Concomitant]
     Indication: PHYTOTHERAPY
  2. NIASPAN [Suspect]
     Indication: BLOOD CHOLESTEROL INCREASED
     Dates: start: 20101001, end: 20101001
  3. NIACIN [Concomitant]
     Indication: BLOOD CHOLESTEROL INCREASED
  4. ZOLOFT [Concomitant]
     Indication: ANXIETY
  5. RED YEAST RICE [Concomitant]
     Indication: BLOOD CHOLESTEROL INCREASED

REACTIONS (1)
  - PALPITATIONS [None]
